FAERS Safety Report 21812581 (Version 1)
Quarter: 2023Q1

REPORT INFORMATION
  Report Type: Spontaneous
  Country: IT (occurrence: IT)
  Receive Date: 20230103
  Receipt Date: 20230103
  Transmission Date: 20230417
  Serious: Yes (Other)
  Sender: FDA-Public Use
  Company Number: None

PATIENT
  Age: 70 Year
  Sex: Female

DRUGS (2)
  1. LAPATINIB [Suspect]
     Active Substance: LAPATINIB
     Indication: Breast cancer stage IV
     Dosage: 1250 MG, QD (1250 MG / DIE)
     Route: 048
     Dates: start: 20221121, end: 20221215
  2. CAPECITABINE [Suspect]
     Active Substance: CAPECITABINE
     Indication: Breast cancer stage IV
     Dosage: 1500 MG, QD (1550 MG/ DIE)
     Route: 048
     Dates: start: 20221121, end: 20221215

REACTIONS (2)
  - Hyperbilirubinaemia [Unknown]
  - Thrombocytopenia [Unknown]

NARRATIVE: CASE EVENT DATE: 20221215
